FAERS Safety Report 5893894-4 (Version None)
Quarter: 2008Q3

REPORT INFORMATION
  Report Type: 
  Country: None (occurrence: None)
  Receive Date: 20080923
  Receipt Date: 20071204
  Transmission Date: 20090109
  Serious: No
  Sender: FDA-Public Use
  Company Number: US-ASTRAZENECA-2007UW27626

PATIENT
  Age: 94 Year
  Sex: Female

DRUGS (2)
  1. SEROQUEL [Suspect]
     Indication: PSYCHOTIC DISORDER
     Dosage: BETWEEN 175 MG AND 75 MG
     Route: 048
  2. MEDICATIONS FOR HYPERTENSION AND DIABETES [Concomitant]

REACTIONS (2)
  - HALLUCINATION, AUDITORY [None]
  - ILL-DEFINED DISORDER [None]
